FAERS Safety Report 13422772 (Version 1)
Quarter: 2017Q2

REPORT INFORMATION
  Report Type: Spontaneous
  Country: US (occurrence: US)
  Receive Date: 20170407
  Receipt Date: 20170407
  Transmission Date: 20170830
  Serious: Yes (Hospitalization)
  Sender: FDA-Public Use
  Company Number: None

PATIENT
  Age: 89 Year
  Sex: Male
  Weight: 86.41 kg

DRUGS (2)
  1. EDOXABAN [Suspect]
     Active Substance: EDOXABAN TOSYLATE
     Indication: ATRIAL FIBRILLATION
     Route: 048
     Dates: start: 20161223, end: 20170104
  2. ATORVASTATIN [Suspect]
     Active Substance: ATORVASTATIN
     Indication: HYPERLIPIDAEMIA
     Dosage: 80 MG PM PO
     Route: 048
     Dates: start: 20160803, end: 20170103

REACTIONS (14)
  - Pain [None]
  - Blood pressure increased [None]
  - Aspartate aminotransferase increased [None]
  - Gait disturbance [None]
  - Urinary tract infection [None]
  - Fatigue [None]
  - Rhabdomyolysis [None]
  - Myositis [None]
  - Upper respiratory tract infection [None]
  - Alanine aminotransferase increased [None]
  - Fall [None]
  - Asthenia [None]
  - Blood creatine phosphokinase increased [None]
  - Muscular weakness [None]

NARRATIVE: CASE EVENT DATE: 20170103
